FAERS Safety Report 4393318-2 (Version None)
Quarter: 2004Q3

REPORT INFORMATION
  Report Type: 
  Country: None (occurrence: None)
  Receive Date: 20040701
  Receipt Date: 20040617
  Transmission Date: 20050211
  Serious: Yes (Hospitalization)
  Sender: FDA-Public Use
  Company Number: 2004220538FR

PATIENT
  Age: 10 Year
  Sex: Female

DRUGS (4)
  1. SOLU-MEDROL [Suspect]
     Dosage: IV
     Route: 042
     Dates: start: 20021023, end: 20021125
  2. VEPESID [Concomitant]
  3. ARACYTINE [Concomitant]
  4. METHOTREXATE [Concomitant]

REACTIONS (2)
  - BLOOD CHOLESTEROL INCREASED [None]
  - HYPERTRIGLYCERIDAEMIA [None]
